FAERS Safety Report 7054113-9 (Version None)
Quarter: 2010Q4

REPORT INFORMATION
  Report Type: 
  Country: None (occurrence: None)
  Receive Date: 20101020
  Receipt Date: 20101006
  Transmission Date: 20110411
  Serious: Yes (Hospitalization)
  Sender: FDA-Public Use
  Company Number: PHHY2010MX66930

PATIENT
  Sex: Male

DRUGS (3)
  1. DIOVAN [Suspect]
     Dosage: 160 MG (1 TABLET DAILY)
     Route: 048
  2. EXITOCIN [Concomitant]
  3. PLAVIX [Concomitant]

REACTIONS (2)
  - CARDIAC PACEMAKER REPLACEMENT [None]
  - POST PROCEDURAL INFECTION [None]
